FAERS Safety Report 8018269-3 (Version None)
Quarter: 2012Q1

REPORT INFORMATION
  Report Type: 
  Country: None (occurrence: None)
  Receive Date: 20120103
  Receipt Date: 20111228
  Transmission Date: 20120608
  Serious: Yes (Hospitalization)
  Sender: FDA-Public Use
  Company Number: IT-BAYER-2011-124442

PATIENT
  Age: 78 Year
  Sex: Male

DRUGS (6)
  1. ASPIRIN [Suspect]
     Indication: PROPHYLAXIS
     Dosage: 100 MG, QD
     Route: 048
     Dates: start: 20030101, end: 20111202
  2. METFORAL [Concomitant]
     Dosage: DAILY DOSE 1000 MG
     Route: 048
  3. CARVEDILOL [Concomitant]
     Dosage: DAILY DOSE 50 MG
     Route: 048
  4. ATORVASTATIN CALCIUM [Concomitant]
     Dosage: DAILY DOSE 20 MG
     Route: 048
  5. ALDACTONE [Concomitant]
     Dosage: DAILY DOSE 25 MG
     Route: 048
  6. ENALAPRIL MALEATE [Concomitant]
     Dosage: DAILY DOSE 10 MG
     Route: 048

REACTIONS (2)
  - DUODENAL ULCER HAEMORRHAGE [None]
  - ANAEMIA [None]
